FAERS Safety Report 5333782-5 (Version None)
Quarter: 2007Q2

REPORT INFORMATION
  Report Type: 
  Country: None (occurrence: None)
  Receive Date: 20070524
  Receipt Date: 20070509
  Transmission Date: 20071010
  Serious: Yes (Other)
  Sender: FDA-Public Use
  Company Number: US-ELI_LILLY_AND_COMPANY-US200705001613

PATIENT
  Sex: Female

DRUGS (3)
  1. HUMALOG MIX 75/25 [Suspect]
     Indication: DIABETES MELLITUS
     Dosage: 35 U, 2/D
     Dates: end: 20070101
  2. HUMALOG MIX 75/25 [Suspect]
     Dosage: 105 U, 2/D
     Dates: start: 20070101, end: 20070101
  3. HUMALOG MIX 75/25 [Suspect]
     Dosage: 105 U, DAILY (1/D)

REACTIONS (4)
  - BLOOD GLUCOSE INCREASED [None]
  - CONVULSION [None]
  - DRUG INEFFECTIVE [None]
  - EYE DEGENERATIVE DISORDER [None]
